FAERS Safety Report 17573061 (Version 1)
Quarter: 2020Q1

REPORT INFORMATION
  Report Type: Spontaneous
  Country: MX (occurrence: MX)
  Receive Date: 20200323
  Receipt Date: 20200323
  Transmission Date: 20200409
  Serious: Yes (Other)
  Sender: FDA-Public Use
  Company Number: NVSC2020MX023412

PATIENT
  Age: 66 Year
  Sex: Female
  Weight: 69 kg

DRUGS (4)
  1. METFORMIN [Concomitant]
     Active Substance: METFORMIN HYDROCHLORIDE
     Indication: DIABETES MELLITUS
     Dosage: 850 MG, QD (9 YEARS AGO)
     Route: 048
  2. GLIBENCLAMIDE [Concomitant]
     Active Substance: GLYBURIDE
     Indication: DIABETES MELLITUS
     Dosage: 5 MG, QD (8 YEARS AGO)
     Route: 048
  3. TRAVATAN [Suspect]
     Active Substance: TRAVOPROST
     Dosage: 2.5 ML, BID
     Route: 047
     Dates: start: 201904
  4. TRAVATAN [Suspect]
     Active Substance: TRAVOPROST
     Indication: GLAUCOMA
     Dosage: 2.5 ML, BID
     Route: 047
     Dates: start: 201105, end: 201901

REACTIONS (6)
  - Eye irritation [Unknown]
  - Accident [Unknown]
  - Gait disturbance [Recovered/Resolved with Sequelae]
  - Fall [Recovered/Resolved with Sequelae]
  - Incorrect dose administered [Unknown]
  - Spinal fracture [Recovered/Resolved with Sequelae]

NARRATIVE: CASE EVENT DATE: 201901
